FAERS Safety Report 14970688 (Version 25)
Quarter: 2024Q3

REPORT INFORMATION
  Report Type: Spontaneous
  Country: FR (occurrence: FR)
  Receive Date: 20180604
  Receipt Date: 20240722
  Transmission Date: 20241016
  Serious: Yes (Other)
  Sender: GLAXOSMITHKLINE
  Company Number: FR-UCBSA-2018013909

PATIENT
  Sex: Female
  Weight: 77 kg

DRUGS (50)
  1. AMOXICILLIN [Suspect]
     Active Substance: AMOXICILLIN
     Indication: Product used for unknown indication
     Dosage: 3 G, QD
     Route: 048
     Dates: start: 20170804, end: 20170811
  2. AMOXICILLIN [Suspect]
     Active Substance: AMOXICILLIN
     Dosage: 1 G, 1D
     Route: 048
     Dates: start: 20180811
  3. FERROUS SULFATE [Suspect]
     Active Substance: FERROUS SULFATE
     Indication: Normochromic normocytic anaemia
     Dosage: 1 DF, QD
     Route: 065
     Dates: start: 20170313
  4. FUROSEMIDE [Suspect]
     Active Substance: FUROSEMIDE
     Indication: Hypertension
     Dosage: 40 MG, QD
     Route: 065
  5. FUROSEMIDE [Suspect]
     Active Substance: FUROSEMIDE
     Dosage: 50 MG
     Route: 065
  6. POTASSIUM CHLORIDE [Suspect]
     Active Substance: POTASSIUM CHLORIDE
     Indication: Hypokalaemia
     Dosage: 3600 MG, QD
     Route: 065
     Dates: start: 20170804
  7. POTASSIUM CHLORIDE [Suspect]
     Active Substance: POTASSIUM CHLORIDE
     Dosage: 1200 MG, QD
     Route: 065
  8. NICOPATCH [Suspect]
     Active Substance: NICOTINE
     Indication: Ex-tobacco user
     Dosage: 7 MG, QD
     Route: 065
     Dates: start: 20170224, end: 20170516
  9. FOLIC ACID [Suspect]
     Active Substance: FOLIC ACID
     Indication: Normochromic normocytic anaemia
     Dosage: 5 MG, QD
     Route: 065
     Dates: start: 20170313
  10. RAMIPRIL [Suspect]
     Active Substance: RAMIPRIL
     Indication: Hypertension
     Dosage: 2.5 MG, QD
     Route: 048
     Dates: start: 20160930, end: 20170224
  11. RAMIPRIL [Suspect]
     Active Substance: RAMIPRIL
     Dosage: 2.5 MG, QD
     Route: 048
     Dates: start: 20170224
  12. LEUCOVORIN [Suspect]
     Active Substance: LEUCOVORIN\LEUCOVORIN CALCIUM
     Indication: Normochromic normocytic anaemia
     Dosage: 5 MG, QD
     Route: 065
     Dates: start: 20170224, end: 20170313
  13. LEUCOVORIN [Suspect]
     Active Substance: LEUCOVORIN\LEUCOVORIN CALCIUM
     Dosage: 5 MG, QD
     Route: 065
     Dates: start: 20170313
  14. POTASSIUM CHLORIDE [Suspect]
     Active Substance: POTASSIUM CHLORIDE
     Indication: Hypokalaemia
     Dosage: 3600 MG, QD
     Route: 065
     Dates: start: 20180804
  15. POTASSIUM CHLORIDE [Suspect]
     Active Substance: POTASSIUM CHLORIDE
     Dosage: 1200 MG, QD
     Route: 065
  16. PROPRANOLOL HYDROCHLORIDE [Suspect]
     Active Substance: PROPRANOLOL HYDROCHLORIDE
     Indication: Hypertension
     Dosage: 80 MG, 1D (1 IN 1 D)
     Route: 065
     Dates: start: 20170516
  17. PROPRANOLOL HYDROCHLORIDE [Suspect]
     Active Substance: PROPRANOLOL HYDROCHLORIDE
     Dosage: UNK
     Route: 065
     Dates: start: 20170516
  18. LABETALOL HYDROCHLORIDE [Suspect]
     Active Substance: LABETALOL\LABETALOL HYDROCHLORIDE
     Indication: Hypertension
     Dosage: 80 MG, QD
     Route: 048
     Dates: start: 20170516
  19. METFORMIN HYDROCHLORIDE [Suspect]
     Active Substance: METFORMIN HYDROCHLORIDE
     Indication: Type 2 diabetes mellitus
     Dosage: 1700 MG, QD
     Route: 048
     Dates: start: 20160930, end: 20170224
  20. METFORMIN HYDROCHLORIDE [Suspect]
     Active Substance: METFORMIN HYDROCHLORIDE
     Dosage: 850 MG
     Route: 048
     Dates: start: 20170224
  21. POLYETHYLENE GLYCOL 4000 [Suspect]
     Active Substance: POLYETHYLENE GLYCOL 4000
     Indication: Constipation
     Dosage: 1 DF, QD
     Route: 048
     Dates: start: 20160930, end: 20170405
  22. POLYETHYLENE GLYCOL 4000 [Suspect]
     Active Substance: POLYETHYLENE GLYCOL 4000
     Dosage: UNK
     Route: 065
  23. LANTUS [Suspect]
     Active Substance: INSULIN GLARGINE
     Indication: Type 2 diabetes mellitus
     Dosage: 20 MG, QD
     Route: 048
     Dates: start: 20170224
  24. LANTUS [Suspect]
     Active Substance: INSULIN GLARGINE
     Dosage: 20 IU, QD
     Route: 048
     Dates: start: 20170724
  25. AMITRIPTYLINE HYDROCHLORIDE [Suspect]
     Active Substance: AMITRIPTYLINE HYDROCHLORIDE
     Indication: Diabetic neuropathy
     Dosage: 2 DF, QD
     Route: 065
     Dates: start: 20160930
  26. AMITRIPTYLINE HYDROCHLORIDE [Suspect]
     Active Substance: AMITRIPTYLINE HYDROCHLORIDE
     Dosage: 2 DF, QD
     Route: 065
     Dates: start: 20170914
  27. HUMALOG [Suspect]
     Active Substance: INSULIN LISPRO
     Indication: Type 2 diabetes mellitus
     Dosage: UNK
     Route: 065
     Dates: start: 20161230, end: 20170224
  28. HUMALOG [Suspect]
     Active Substance: INSULIN LISPRO
     Dosage: 21 ?G/M2, QD
     Route: 065
     Dates: start: 20170224, end: 20170224
  29. LEVEMIR [Suspect]
     Active Substance: INSULIN DETEMIR
     Indication: Type 2 diabetes mellitus
     Dosage: 10 IU, QD
     Route: 065
     Dates: start: 20160930, end: 20170224
  30. NICARDIPINE HYDROCHLORIDE [Suspect]
     Active Substance: NICARDIPINE HYDROCHLORIDE
     Indication: Hypertension
     Dosage: 50 MG, BID
     Route: 065
     Dates: start: 20170313, end: 20170405
  31. NICARDIPINE HYDROCHLORIDE [Suspect]
     Active Substance: NICARDIPINE HYDROCHLORIDE
     Dosage: 100 MG, 1D
     Route: 065
     Dates: start: 20170405
  32. NICARDIPINE HYDROCHLORIDE [Suspect]
     Active Substance: NICARDIPINE HYDROCHLORIDE
     Dosage: 50 MG
     Route: 065
  33. GABAPENTIN [Suspect]
     Active Substance: GABAPENTIN
     Indication: Diabetic neuropathy
     Dosage: 400 MG, QD
     Route: 048
  34. GABAPENTIN [Suspect]
     Active Substance: GABAPENTIN
     Dosage: 80 MG, QD
     Route: 048
     Dates: start: 20160930
  35. GABAPENTIN [Suspect]
     Active Substance: GABAPENTIN
     Dosage: 800 MG, 1D
     Route: 048
     Dates: start: 20160930
  36. CHLORPROMAZINE [Suspect]
     Active Substance: CHLORPROMAZINE
     Indication: Bipolar I disorder
     Dosage: 0.5 DF
     Route: 065
  37. CHLORPROMAZINE [Suspect]
     Active Substance: CHLORPROMAZINE
     Dosage: 25 MG, QD
     Route: 065
     Dates: start: 20170720
  38. METHYLDOPA [Suspect]
     Active Substance: METHYLDOPA
     Indication: Hypertension
     Dosage: 15000 MG, QD
     Route: 048
     Dates: start: 20170720
  39. TRAMADOL HYDROCHLORIDE [Suspect]
     Active Substance: TRAMADOL HYDROCHLORIDE
     Indication: Diabetic neuropathy
     Dosage: 100 MG, QD
     Route: 065
     Dates: start: 20160930, end: 20170306
  40. TRAMADOL HYDROCHLORIDE [Suspect]
     Active Substance: TRAMADOL HYDROCHLORIDE
     Dosage: 50 MG, QD
     Route: 065
     Dates: start: 20160930, end: 20170306
  41. GLICLAZIDE [Suspect]
     Active Substance: GLICLAZIDE
     Indication: Type 2 diabetes mellitus
     Dosage: 120 MG, QD
     Route: 065
     Dates: start: 20160930, end: 20170224
  42. ARIPIPRAZOLE [Suspect]
     Active Substance: ARIPIPRAZOLE
     Indication: Bipolar I disorder
     Dosage: 10 MG, QD
     Route: 065
     Dates: start: 20160930, end: 20170224
  43. NICARDIPINE HYDROCHLORIDE [Suspect]
     Active Substance: NICARDIPINE HYDROCHLORIDE
     Indication: Hypertension
     Dosage: 1 DF(1 DF, UNK; UNKNOWN)
     Route: 065
     Dates: start: 20170313, end: 20180405
  44. NICARDIPINE HYDROCHLORIDE [Suspect]
     Active Substance: NICARDIPINE HYDROCHLORIDE
     Dosage: 50 MG, BID
     Route: 065
     Dates: start: 20170405
  45. NICARDIPINE HYDROCHLORIDE [Suspect]
     Active Substance: NICARDIPINE HYDROCHLORIDE
     Dosage: 1 DF
     Route: 065
  46. FERROUS SULFATE [Suspect]
     Active Substance: FERROUS SULFATE
     Indication: Normochromic normocytic anaemia
     Dosage: 1 DF, QD
     Route: 065
     Dates: start: 20170313
  47. FERROUS SULFATE [Suspect]
     Active Substance: FERROUS SULFATE
     Dosage: 1 DF, QD
     Route: 065
     Dates: start: 20170914
  48. INSULIN PORK\INSULIN PURIFIED PORK [Suspect]
     Active Substance: INSULIN PORK\INSULIN PURIFIED PORK
     Indication: Type 2 diabetes mellitus
     Dosage: UNK, QD, 21 ?G/M2
     Route: 065
     Dates: start: 20160930, end: 20170224
  49. AMOXICILLIN SODIUM [Suspect]
     Active Substance: AMOXICILLIN SODIUM
     Indication: Product used for unknown indication
     Dosage: 3 G, QD
     Route: 065
     Dates: start: 20170811
  50. LINEZOLID [Suspect]
     Active Substance: LINEZOLID
     Indication: Product used for unknown indication
     Dosage: 50 MG
     Route: 065
     Dates: start: 20170313, end: 20170405

REACTIONS (3)
  - Exposure during pregnancy [Recovered/Resolved]
  - Premature delivery [Unknown]
  - Pregnancy [Unknown]

NARRATIVE: CASE EVENT DATE: 20170914
